FAERS Safety Report 5641567-5 (Version None)
Quarter: 2008Q1

REPORT INFORMATION
  Report Type: 
  Country: None (occurrence: None)
  Receive Date: 20080227
  Receipt Date: 20071106
  Transmission Date: 20080703
  Serious: No
  Sender: FDA-Public Use
  Company Number: A0693023A

PATIENT
  Sex: Male

DRUGS (1)
  1. NICORETTE [Suspect]
     Indication: DRUG USE FOR UNKNOWN INDICATION
     Route: 002
     Dates: end: 20070101

REACTIONS (3)
  - DRY THROAT [None]
  - INTENTIONAL DRUG MISUSE [None]
  - SALIVARY HYPERSECRETION [None]
